FAERS Safety Report 8407398-8 (Version None)
Quarter: 2012Q2

REPORT INFORMATION
  Report Type: 
  Country: None (occurrence: None)
  Receive Date: 20120323
  Receipt Date: 20111130
  Transmission Date: 20120825
  Serious: Yes (Disabling)
  Sender: FDA-Public Use
  Company Number: 163-21880-11120176

PATIENT
  Age: 51 Year
  Sex: Male
  Weight: 86.1834 kg

DRUGS (4)
  1. REVLIMID [Suspect]
     Indication: MULTIPLE MYELOMA
     Dosage: 25 MG, DAILY X 21 DAYS, PO
     Route: 048
     Dates: start: 20111012
  2. FOLIC ACID [Concomitant]
  3. CALCIUM + VITAMIN D (LEKOVIT CA) [Concomitant]
  4. ACYCLOVIR [Concomitant]

REACTIONS (1)
  - VISION BLURRED [None]
